FAERS Safety Report 15366044 (Version 2)
Quarter: 2018Q3

REPORT INFORMATION
  Report Type: Spontaneous
  Country: CH (occurrence: CH)
  Receive Date: 20180910
  Receipt Date: 20180918
  Transmission Date: 20181010
  Serious: Yes (Other)
  Sender: FDA-Public Use
  Company Number: PHHY2018CH088933

PATIENT
  Age: 58 Year
  Sex: Female

DRUGS (4)
  1. LEVETIRACETAM. [Suspect]
     Active Substance: LEVETIRACETAM
     Indication: EPILEPSY
     Route: 065
  2. SOLU?MEDROL [Concomitant]
     Active Substance: METHYLPREDNISOLONE SODIUM SUCCINATE
     Dosage: DOSE DOUBLED
     Route: 048
  3. RITUXIMAB. [Suspect]
     Active Substance: RITUXIMAB
     Indication: PRODUCT USED FOR UNKNOWN INDICATION
     Route: 065
  4. SOLU?MEDROL [Concomitant]
     Active Substance: METHYLPREDNISOLONE SODIUM SUCCINATE
     Indication: PERIPHERAL SENSORY NEUROPATHY
     Dosage: 500 MG, UNK
     Route: 042

REACTIONS (7)
  - Somnolence [Recovering/Resolving]
  - Hemianopia [Recovering/Resolving]
  - Epilepsy [Recovering/Resolving]
  - Parotid gland enlargement [Recovering/Resolving]
  - Sjogren^s syndrome [Recovering/Resolving]
  - Paralysis [Recovering/Resolving]
  - General physical health deterioration [Recovering/Resolving]
